FAERS Safety Report 21291910 (Version 1)
Quarter: 2022Q3

REPORT INFORMATION
  Report Type: Spontaneous
  Country: US (occurrence: US)
  Receive Date: 20220904
  Receipt Date: 20220904
  Transmission Date: 20221026
  Serious: No
  Sender: FDA-Public Use
  Company Number: US-ViiV Healthcare Limited-84417

PATIENT
  Sex: Male

DRUGS (3)
  1. CABENUVA [Suspect]
     Active Substance: CABOTEGRAVIR\RILPIVIRINE
     Indication: Antiretroviral therapy
     Dosage: UNK,600 /900 MG, DOSE ONE
     Dates: start: 20220608
  2. CABENUVA [Suspect]
     Active Substance: CABOTEGRAVIR\RILPIVIRINE
     Dosage: UNK, 600/900 MG, DOSE TWO
     Dates: start: 20220706
  3. CABENUVA [Suspect]
     Active Substance: CABOTEGRAVIR\RILPIVIRINE
     Dosage: UNK, 600/900 MG, DOSE THREE
     Dates: start: 20220804

REACTIONS (1)
  - Inappropriate schedule of product administration [Unknown]
